FAERS Safety Report 4878229-8 (Version None)
Quarter: 2006Q1

REPORT INFORMATION
  Report Type: 
  Country: None (occurrence: None)
  Receive Date: 20060111
  Receipt Date: 20060102
  Transmission Date: 20060701
  Serious: Yes (Hospitalization)
  Sender: FDA-Public Use
  Company Number: NO-MERCK-0601NOR00003

PATIENT
  Age: 9 Year
  Sex: Female

DRUGS (5)
  1. SINGULAIR [Suspect]
     Indication: ASTHMA
     Route: 048
     Dates: start: 20040301
  2. CETIRIZINE HYDROCHLORIDE [Concomitant]
     Indication: HYPERSENSITIVITY
     Route: 048
  3. ALBUTEROL SULFATE [Concomitant]
     Indication: ASTHMA
     Route: 055
  4. FLUTICASONE PROPIONATE AND SALMETEROL XINAFOATE [Concomitant]
     Indication: ASTHMA
     Route: 055
  5. ACETYLCYSTEINE [Concomitant]
     Indication: ASTHMA
     Route: 055
     Dates: start: 20050301

REACTIONS (2)
  - NASAL POLYPS [None]
  - SINUSITIS [None]
